FAERS Safety Report 5580274-4 (Version None)
Quarter: 2008Q1

REPORT INFORMATION
  Report Type: 
  Country: None (occurrence: None)
  Receive Date: 20080103
  Receipt Date: 20071224
  Transmission Date: 20080703
  Serious: Yes (Hospitalization)
  Sender: FDA-Public Use
  Company Number: B0497474A

PATIENT
  Age: 86 Year
  Sex: Male
  Weight: 90 kg

DRUGS (5)
  1. ZELITREX [Suspect]
     Indication: HERPES ZOSTER
     Dosage: 500MG THREE TIMES PER DAY
     Route: 048
     Dates: start: 20071123, end: 20071130
  2. EPO [Concomitant]
  3. LASILIX [Concomitant]
  4. PRITOR [Concomitant]
  5. AMLOR [Concomitant]

REACTIONS (4)
  - ALTERED STATE OF CONSCIOUSNESS [None]
  - HALLUCINATION [None]
  - MALAISE [None]
  - OVERDOSE [None]
